FAERS Safety Report 5288252-X (Version None)
Quarter: 2007Q2

REPORT INFORMATION
  Report Type: 
  Country: None (occurrence: None)
  Receive Date: 20070403
  Receipt Date: 20070403
  Transmission Date: 20071010
  Serious: Yes (Hospitalization, Other)
  Sender: FDA-Public Use
  Company Number: None

PATIENT
  Age: 59 Year
  Sex: Female
  Weight: 68.0396 kg

DRUGS (2)
  1. HURRISEAL   UNKNOWN [Suspect]
     Indication: ARTIFICIAL CROWN PROCEDURE
     Dosage: SWABBED ON LEFT GUM
     Dates: start: 20070326, end: 20070326
  2. HURRISEAL   UNKNOWN [Suspect]
     Indication: SENSITIVITY OF TEETH
     Dosage: SWABBED ON LEFT GUM
     Dates: start: 20070326, end: 20070326

REACTIONS (14)
  - APHTHOUS STOMATITIS [None]
  - BLOOD PRESSURE INCREASED [None]
  - BURNING SENSATION [None]
  - DYSARTHRIA [None]
  - DYSPNOEA [None]
  - FEELING HOT [None]
  - HYPOAESTHESIA [None]
  - LARYNGEAL DISORDER [None]
  - LETHARGY [None]
  - RETCHING [None]
  - SKIN EXFOLIATION [None]
  - SKIN NECROSIS [None]
  - SWELLING FACE [None]
  - SWOLLEN TONGUE [None]
